FAERS Safety Report 15271258 (Version 2)
Quarter: 2018Q3

REPORT INFORMATION
  Report Type: Spontaneous
  Country: BE (occurrence: BE)
  Receive Date: 20180813
  Receipt Date: 20180829
  Transmission Date: 20181010
  Serious: Yes (Other)
  Sender: FDA-Public Use
  Company Number: PHHY2018BE068564

PATIENT
  Age: 63 Year
  Sex: Female

DRUGS (20)
  1. HIZENTRA [Suspect]
     Active Substance: HUMAN IMMUNOGLOBULIN G
     Dosage: UNK
     Route: 058
     Dates: start: 20180326, end: 20180326
  2. HIZENTRA [Suspect]
     Active Substance: HUMAN IMMUNOGLOBULIN G
     Dosage: UNK
     Route: 058
     Dates: start: 20180409, end: 20180409
  3. HIZENTRA [Suspect]
     Active Substance: HUMAN IMMUNOGLOBULIN G
     Dosage: UNK
     Route: 058
     Dates: start: 20180312, end: 20180312
  4. HIZENTRA [Suspect]
     Active Substance: HUMAN IMMUNOGLOBULIN G
     Dosage: UNK
     Route: 058
     Dates: start: 20180326, end: 20180326
  5. HIZENTRA [Suspect]
     Active Substance: HUMAN IMMUNOGLOBULIN G
     Dosage: UNK
     Route: 058
     Dates: start: 20180423, end: 20180423
  6. HIZENTRA [Suspect]
     Active Substance: HUMAN IMMUNOGLOBULIN G
     Indication: HYPOGAMMAGLOBULINAEMIA
     Dosage: UNK
     Route: 058
     Dates: start: 20171204, end: 20171204
  7. HIZENTRA [Suspect]
     Active Substance: HUMAN IMMUNOGLOBULIN G
     Dosage: UNK
     Route: 058
     Dates: start: 20180319, end: 20180319
  8. HIZENTRA [Suspect]
     Active Substance: HUMAN IMMUNOGLOBULIN G
     Dosage: UNK
     Route: 058
     Dates: start: 20180319, end: 20180319
  9. HIZENTRA [Suspect]
     Active Substance: HUMAN IMMUNOGLOBULIN G
     Dosage: UNK
     Route: 058
     Dates: start: 20180402, end: 20180402
  10. HIZENTRA [Suspect]
     Active Substance: HUMAN IMMUNOGLOBULIN G
     Dosage: UNK
     Route: 058
     Dates: start: 20180409, end: 20180409
  11. BISOPROLOL [Suspect]
     Active Substance: BISOPROLOL
     Indication: ARRHYTHMIA
     Dosage: 5 MG, UNK
     Route: 065
  12. HIZENTRA [Suspect]
     Active Substance: HUMAN IMMUNOGLOBULIN G
     Dosage: UNK
     Route: 058
     Dates: start: 20171204, end: 20171204
  13. HIZENTRA [Suspect]
     Active Substance: HUMAN IMMUNOGLOBULIN G
     Dosage: UNK
     Route: 058
     Dates: start: 20171204, end: 20171204
  14. HIZENTRA [Suspect]
     Active Substance: HUMAN IMMUNOGLOBULIN G
     Dosage: UNK
     Route: 058
     Dates: start: 20180423, end: 20180423
  15. HIZENTRA [Suspect]
     Active Substance: HUMAN IMMUNOGLOBULIN G
     Dosage: UNK
     Route: 058
     Dates: start: 20180416, end: 20180416
  16. HIZENTRA [Suspect]
     Active Substance: HUMAN IMMUNOGLOBULIN G
     Dosage: UNK
     Route: 058
     Dates: start: 20180312, end: 20180312
  17. HIZENTRA [Suspect]
     Active Substance: HUMAN IMMUNOGLOBULIN G
     Dosage: UNK
     Route: 058
     Dates: start: 20180402, end: 20180402
  18. INDERAL [Concomitant]
     Active Substance: PROPRANOLOL HYDROCHLORIDE
     Indication: PRODUCT USED FOR UNKNOWN INDICATION
     Route: 065
  19. HIZENTRA [Suspect]
     Active Substance: HUMAN IMMUNOGLOBULIN G
     Dosage: UNK
     Route: 058
     Dates: start: 20180416, end: 20180416
  20. HIZENTRA [Suspect]
     Active Substance: HUMAN IMMUNOGLOBULIN G
     Dosage: 4 G, QW (20 ML)
     Route: 058

REACTIONS (5)
  - Nervousness [Not Recovered/Not Resolved]
  - Palpitations [Recovering/Resolving]
  - Agitation [Not Recovered/Not Resolved]
  - Arrhythmia [Recovering/Resolving]
  - Rash pruritic [Recovering/Resolving]

NARRATIVE: CASE EVENT DATE: 2018
